FAERS Safety Report 10398980 (Version 2)
Quarter: 2014Q3

REPORT INFORMATION
  Report Type: Spontaneous
  Country: ES (occurrence: ES)
  Receive Date: 20140821
  Receipt Date: 20140821
  Transmission Date: 20150326
  Serious: Yes (Other)
  Sender: FDA-Public Use
  Company Number: ES-RANBAXY-2014RR-84024

PATIENT
  Age: 28 Year
  Sex: Male

DRUGS (2)
  1. CLARITHROMYCIN. [Suspect]
     Active Substance: CLARITHROMYCIN
     Indication: ALLERGY TEST
     Dosage: PROGRESIVELY INCREASED DOSES, 500 MG CUMULATIVE DOSE
     Route: 048
  2. CLARITHROMYCIN. [Suspect]
     Active Substance: CLARITHROMYCIN
     Indication: PHARYNGITIS
     Dosage: 500 MG TABLET
     Route: 065

REACTIONS (3)
  - Depersonalisation [Recovered/Resolved]
  - Neurotoxicity [Recovered/Resolved]
  - Erythema [Recovered/Resolved]
